FAERS Safety Report 8802864 (Version 1)
Quarter: 2012Q4

REPORT INFORMATION
  Report Type: Report from Study
  Country: DE (occurrence: DE)
  Receive Date: 20120921
  Receipt Date: 20120921
  Transmission Date: 20130627
  Serious: Yes (Hospitalization)
  Sender: FDA-Public Use
  Company Number: DE-ABBOTT-12P-062-0979094-00

PATIENT
  Age: 19 Year
  Sex: Male
  Weight: 61 kg

DRUGS (3)
  1. HUMIRA PRE-FILLED SYRINGE [Suspect]
     Indication: CROHN^S DISEASE
     Route: 058
     Dates: start: 20120511
  2. DECORTIN [Concomitant]
     Indication: PRODUCT USED FOR UNKNOWN INDICATION
     Dosage: 10 mg daily
     Dates: start: 20120801
  3. SALOFALK [Concomitant]
     Indication: PRODUCT USED FOR UNKNOWN INDICATION
     Dosage: 3 g daily
     Dates: start: 20000327

REACTIONS (1)
  - Calculus ureteric [Recovered/Resolved]
